FAERS Safety Report 24877286 (Version 1)
Quarter: 2025Q1

REPORT INFORMATION
  Report Type: Spontaneous
  Country: DE (occurrence: DE)
  Receive Date: 20250123
  Receipt Date: 20250123
  Transmission Date: 20250409
  Serious: Yes (Life-Threatening, Hospitalization, Other)
  Sender: ALKEM
  Company Number: DE-ALKEM LABORATORIES LIMITED-DE-ALKEM-2024-26935

PATIENT
  Age: 54 Year
  Sex: Female

DRUGS (2)
  1. AMLODIPINE BESYLATE [Suspect]
     Active Substance: AMLODIPINE BESYLATE
     Indication: Product used for unknown indication
     Route: 065
  2. BISOPROLOL [Suspect]
     Active Substance: BISOPROLOL
     Indication: Product used for unknown indication
     Route: 065

REACTIONS (15)
  - Cardiogenic shock [Unknown]
  - Haemodynamic instability [Unknown]
  - Pulseless electrical activity [Unknown]
  - Respiratory failure [Unknown]
  - Shock [Unknown]
  - Suicide attempt [Unknown]
  - Hypothermia [Unknown]
  - Femoral artery dissection [Unknown]
  - Compartment syndrome [Unknown]
  - Renal impairment [Unknown]
  - Overdose [Unknown]
  - Toxicity to various agents [Unknown]
  - Drug level increased [Recovering/Resolving]
  - Leg amputation [Unknown]
  - Peripheral ischaemia [Unknown]
